FAERS Safety Report 16137473 (Version 2)
Quarter: 2019Q2

REPORT INFORMATION
  Report Type: Spontaneous
  Country: US (occurrence: US)
  Receive Date: 20190401
  Receipt Date: 20190416
  Transmission Date: 20190711
  Serious: No
  Sender: FDA-Public Use
  Company Number: US-AMGEN-USASP2019050625

PATIENT
  Age: 49 Year
  Sex: Female

DRUGS (14)
  1. IBUPROFEN. [Concomitant]
     Active Substance: IBUPROFEN
     Dosage: 800 MILLIGRAM
  2. CEPHALEXINE [Concomitant]
     Active Substance: CEPHALEXIN
     Dosage: 500 MILLIGRAM
  3. ENBREL [Suspect]
     Active Substance: ETANERCEPT
     Indication: RHEUMATOID ARTHRITIS
     Dosage: 50 MILLIGRAM, QWK
     Route: 065
     Dates: start: 20171012
  4. CEFALEXIN [Concomitant]
     Active Substance: CEPHALEXIN
     Dosage: 500 MILLIGRAM
  5. FOLIC ACID. [Concomitant]
     Active Substance: FOLIC ACID
     Dosage: 1 MILLIGRAM
  6. METHOTREXATE. [Concomitant]
     Active Substance: METHOTREXATE
     Dosage: 50 MG/2ML
  7. PROMETHAZINE [Concomitant]
     Active Substance: PROMETHAZINE\PROMETHAZINE HYDROCHLORIDE
     Dosage: 2 MILLIGRAM
  8. PROMETHAZINE [Concomitant]
     Active Substance: PROMETHAZINE\PROMETHAZINE HYDROCHLORIDE
     Dosage: 25 MILLIGRAM
  9. ENBREL [Suspect]
     Active Substance: ETANERCEPT
     Dosage: 50 MILLIGRAM, QWK
     Route: 058
  10. ACICLOVIR [Concomitant]
     Active Substance: ACYCLOVIR
     Dosage: 400 MILLIGRAM
  11. NITROFURANTOIN. [Concomitant]
     Active Substance: NITROFURANTOIN
     Dosage: 100 MILLIGRAM
  12. PANTOPRAZOLE [Concomitant]
     Active Substance: PANTOPRAZOLE
     Dosage: 40 MILLIGRAM
  13. VALACYCLOVIR [Concomitant]
     Active Substance: VALACYCLOVIR HYDROCHLORIDE
     Dosage: 500 MILLIGRAM
  14. LISINOPRIL. [Concomitant]
     Active Substance: LISINOPRIL
     Dosage: 40 MILLIGRAM

REACTIONS (3)
  - Hypertension [Recovered/Resolved]
  - Product dose omission [Unknown]
  - Influenza [Recovered/Resolved]

NARRATIVE: CASE EVENT DATE: 2018
